FAERS Safety Report 9558284 (Version 1)
Quarter: 2013Q3

REPORT INFORMATION
  Report Type: Spontaneous
  Country: IT (occurrence: IT)
  Receive Date: 20130926
  Receipt Date: 20130926
  Transmission Date: 20140515
  Serious: Yes (Other)
  Sender: FDA-Public Use
  Company Number: IT-TEVA-433000ISR

PATIENT
  Age: 73 Year
  Sex: Female
  Weight: 60 kg

DRUGS (5)
  1. FLUOROURACILE TEVA [Suspect]
     Indication: BREAST CANCER
     Route: 040
     Dates: start: 20130418, end: 20130418
  2. METOTRESSATO TEVA [Suspect]
     Indication: BREAST CANCER
     Route: 040
     Dates: start: 20130418, end: 20130418
  3. ENDOXAN BAXTER [Suspect]
     Indication: BREAST CANCER
     Dosage: 1092MG, CYCLICAL, POWDER FOR SOLUTION FOR INTRAVENOUS INFUSION
     Route: 040
     Dates: start: 20130418, end: 20130418
  4. ONDANSETRONE HIKMA [Concomitant]
     Indication: PROPHYLAXIS OF NAUSEA AND VOMITING
     Dosage: 8 MILLIGRAM DAILY;
     Route: 040
     Dates: start: 20130418, end: 20130418
  5. SOLDESAM [Concomitant]
     Indication: PROPHYLAXIS OF NAUSEA AND VOMITING
     Dosage: 8 MILLIGRAM DAILY;
     Route: 040
     Dates: start: 20130418, end: 20130418

REACTIONS (11)
  - Diarrhoea [Unknown]
  - Stomatitis [Unknown]
  - Asthenia [Unknown]
  - Pigmentation disorder [Unknown]
  - Abdominal pain [Unknown]
  - Pain in extremity [Unknown]
  - Alopecia [Unknown]
  - Migraine [Unknown]
  - Insomnia [Unknown]
  - Abdominal distension [Unknown]
  - Flatulence [Unknown]
